FAERS Safety Report 8863366 (Version 1)
Quarter: 2012Q4

REPORT INFORMATION
  Report Type: 
  Country: CN (occurrence: CN)
  Receive Date: 20121025
  Receipt Date: 20121025
  Transmission Date: 20130627
  Serious: Yes (Life-Threatening, Hospitalization)
  Sender: FDA-Public Use
  Company Number: CN-GLAXOSMITHKLINE-B0839978A

PATIENT
  Age: 72 Year
  Sex: Male

DRUGS (2)
  1. LAMOTRIGINE [Suspect]
     Indication: EPILEPSY
     Dosage: 100MG Three times per day
     Route: 048
     Dates: start: 20110712, end: 20110914
  2. PIPERACILLIN + TAZOBACTAM [Concomitant]
     Indication: INFECTION
     Route: 065

REACTIONS (6)
  - Dermatitis exfoliative [Recovered/Resolved with Sequelae]
  - Rash generalised [Recovered/Resolved with Sequelae]
  - Blister [Recovered/Resolved with Sequelae]
  - Mouth ulceration [Recovered/Resolved with Sequelae]
  - Ill-defined disorder [Recovered/Resolved with Sequelae]
  - Pyrexia [Recovered/Resolved with Sequelae]
